FAERS Safety Report 18226491 (Version 1)
Quarter: 2020Q3

REPORT INFORMATION
  Report Type: Spontaneous
  Country: US (occurrence: US)
  Receive Date: 20200902
  Receipt Date: 20200902
  Transmission Date: 20201103
  Serious: Yes (Disabling)
  Sender: FDA-Public Use
  Company Number: None

PATIENT
  Sex: Female
  Weight: 69.85 kg

DRUGS (1)
  1. NEXPLANON [Suspect]
     Active Substance: ETONOGESTREL
     Dates: start: 20200618

REACTIONS (9)
  - Thirst [None]
  - Back pain [None]
  - Dizziness [None]
  - Mood swings [None]
  - Asthenia [None]
  - Hypophagia [None]
  - Abdominal pain [None]
  - Contusion [None]
  - Vulvovaginal pain [None]
